FAERS Safety Report 5625914-6 (Version None)
Quarter: 2008Q1

REPORT INFORMATION
  Report Type: 
  Country: None (occurrence: None)
  Receive Date: 20080213
  Receipt Date: 20080213
  Transmission Date: 20080703
  Serious: Yes (Life-Threatening)
  Sender: FDA-Public Use
  Company Number: None

PATIENT
  Age: 61 Year
  Sex: Female
  Weight: 54.4316 kg

DRUGS (2)
  1. GABAPENTIN [Suspect]
     Indication: CHEMOTHERAPY
     Dosage: 100 MG  X2/DAY  PO
     Route: 048
     Dates: start: 20071110, end: 20071112
  2. GABAPENTIN [Suspect]
     Indication: NEUROPATHY PERIPHERAL
     Dosage: 100 MG  X2/DAY  PO
     Route: 048
     Dates: start: 20071110, end: 20071112

REACTIONS (1)
  - SUICIDAL IDEATION [None]
